FAERS Safety Report 13882211 (Version 2)
Quarter: 2017Q3

REPORT INFORMATION
  Report Type: Report from Study
  Country: MX (occurrence: MX)
  Receive Date: 20170818
  Receipt Date: 20170901
  Transmission Date: 20171127
  Serious: Yes (Death)
  Sender: FDA-Public Use
  Company Number: PHHY2015MX113156

PATIENT
  Age: 81 Year
  Sex: Female
  Weight: 46 kg

DRUGS (2)
  1. CO-DIOVAN [Suspect]
     Active Substance: HYDROCHLOROTHIAZIDE\VALSARTAN
     Indication: HYPERTENSION
     Dosage: 0.5 DF, QD (HYDROCHLOROTHIAZIDE 12.5 MG, VALSARTAN 80 MG), QD
     Route: 065
  2. CO-DIOVAN [Suspect]
     Active Substance: HYDROCHLOROTHIAZIDE\VALSARTAN
     Dosage: 1 DF (HYDROCHLOROTHIAZIDE 12.5 MG, VALSARTAN 80 MG), QD
     Route: 048
     Dates: end: 20170614

REACTIONS (7)
  - Respiratory failure [Fatal]
  - Wrong technique in product usage process [Recovered/Resolved]
  - Drug prescribing error [Recovered/Resolved]
  - Malnutrition [Unknown]
  - Headache [Unknown]
  - Dysphonia [Fatal]
  - Malaise [Unknown]

NARRATIVE: CASE EVENT DATE: 201706
